FAERS Safety Report 5509349-2 (Version None)
Quarter: 2007Q4

REPORT INFORMATION
  Report Type: 
  Country: None (occurrence: None)
  Receive Date: 20071106
  Receipt Date: 20071024
  Transmission Date: 20080405
  Serious: Yes (Other)
  Sender: FDA-Public Use
  Company Number: 2007SP021583

PATIENT
  Age: 20 Year
  Sex: Female

DRUGS (2)
  1. AFRIN [Suspect]
     Indication: MULTIPLE ALLERGIES
     Dosage: NAS
     Route: 045
  2. AFRIN [Suspect]
     Indication: SINUS DISORDER
     Dosage: NAS
     Route: 045

REACTIONS (8)
  - DEPRESSION [None]
  - DRUG DEPENDENCE [None]
  - FATIGUE [None]
  - INSOMNIA [None]
  - MIGRAINE [None]
  - NASAL CONGESTION [None]
  - NASAL MUCOSAL DISORDER [None]
  - PANIC ATTACK [None]
